FAERS Safety Report 15175804 (Version 2)
Quarter: 2018Q3

REPORT INFORMATION
  Report Type: Report from Study
  Country: MX (occurrence: MX)
  Receive Date: 20180720
  Receipt Date: 20180727
  Transmission Date: 20181010
  Serious: Yes (Other)
  Sender: FDA-Public Use
  Company Number: MX-ELI_LILLY_AND_COMPANY-MX201807007808

PATIENT
  Age: 67 Year
  Sex: Male

DRUGS (1)
  1. CETUXIMAB. [Suspect]
     Active Substance: CETUXIMAB
     Indication: COLORECTAL CANCER
     Dosage: 450 MG, WEEKLY (1/W)
     Route: 042
     Dates: start: 20170803, end: 20180619

REACTIONS (4)
  - Asthenia [Unknown]
  - Decreased appetite [Unknown]
  - Hepatitis [Unknown]
  - Pain [Unknown]

NARRATIVE: CASE EVENT DATE: 2018
